FAERS Safety Report 12548455 (Version 1)
Quarter: 2016Q3

REPORT INFORMATION
  Report Type: Spontaneous
  Country: US (occurrence: None)
  Receive Date: 20160711
  Receipt Date: 20160711
  Transmission Date: 20161109
  Serious: Yes (Other)
  Sender: FDA-Public Use
  Company Number: None

PATIENT
  Age: 68 Year
  Sex: Male
  Weight: 86.18 kg

DRUGS (3)
  1. VITAMINS [Concomitant]
     Active Substance: VITAMINS
  2. CELEBREX [Concomitant]
     Active Substance: CELECOXIB
  3. CITALOPRAM, 20 MG [Suspect]
     Active Substance: CITALOPRAM HYDROBROMIDE
     Indication: DEPRESSION
     Route: 048
     Dates: start: 20160621, end: 20160708

REACTIONS (2)
  - Heart rate decreased [None]
  - Heart rate irregular [None]

NARRATIVE: CASE EVENT DATE: 20160625
